FAERS Safety Report 20482248 (Version 3)
Quarter: 2022Q1

REPORT INFORMATION
  Report Type: Spontaneous
  Country: DE (occurrence: DE)
  Receive Date: 20220216
  Receipt Date: 20220307
  Transmission Date: 20220423
  Serious: Yes (Other)
  Sender: FDA-Public Use
  Company Number: DE-SUN PHARMACEUTICAL INDUSTRIES LTD-2021RR-321751

PATIENT
  Sex: Female
  Weight: 88 kg

DRUGS (2)
  1. FYREMADEL [Suspect]
     Active Substance: GANIRELIX ACETATE
     Indication: In vitro fertilisation
     Dosage: 1 DOSAGE FORM, DAILY
     Route: 065
     Dates: start: 20211123, end: 20211201
  2. FYREMADEL [Suspect]
     Active Substance: GANIRELIX ACETATE
     Indication: Infertility

REACTIONS (2)
  - Drug ineffective [Unknown]
  - Premature ovulation [Unknown]

NARRATIVE: CASE EVENT DATE: 20211123
